FAERS Safety Report 7403203-7 (Version None)
Quarter: 2011Q1

REPORT INFORMATION
  Report Type: 
  Country: None (occurrence: None)
  Receive Date: 20110330
  Receipt Date: 20110315
  Transmission Date: 20110831
  Serious: Yes (Hospitalization)
  Sender: FDA-Public Use
  Company Number: DAV-AE-AMO-11-009

PATIENT
  Age: 37 Year
  Sex: Female

DRUGS (1)
  1. AMOXICILLIN [Suspect]
     Dosage: 500 MG ORAL
     Route: 048

REACTIONS (12)
  - CHEST DISCOMFORT [None]
  - BLOOD PRESSURE SYSTOLIC DECREASED [None]
  - ACCIDENTAL OVERDOSE [None]
  - MYOCARDIAL ISCHAEMIA [None]
  - ARTERIOSPASM CORONARY [None]
  - ANAPHYLACTIC REACTION [None]
  - ALTERED STATE OF CONSCIOUSNESS [None]
  - BLOOD CREATINE PHOSPHOKINASE MB INCREASED [None]
  - WRONG TECHNIQUE IN DRUG USAGE PROCESS [None]
  - RESPIRATORY DISTRESS [None]
  - ELECTROCARDIOGRAM ST SEGMENT DEPRESSION [None]
  - TROPONIN T INCREASED [None]
